FAERS Safety Report 23220751 (Version 6)
Quarter: 2025Q1

REPORT INFORMATION
  Report Type: Spontaneous
  Country: KR (occurrence: KR)
  Receive Date: 20231123
  Receipt Date: 20250213
  Transmission Date: 20250408
  Serious: Yes (Death, Life-Threatening, Hospitalization)
  Sender: CELLTRION
  Company Number: KR-CELLTRION INC.-2023KR021267

PATIENT

DRUGS (30)
  1. VEGZELMA [Suspect]
     Active Substance: BEVACIZUMAB-ADCD
     Indication: Colorectal cancer metastatic
     Dosage: 210 MG, Q2WEEKS
     Route: 042
     Dates: start: 20230724, end: 20231010
  2. VEGZELMA [Suspect]
     Active Substance: BEVACIZUMAB-ADCD
     Dosage: 230 MG, Q2WEEKS
     Route: 042
     Dates: start: 20230807, end: 20231010
  3. VEGZELMA [Suspect]
     Active Substance: BEVACIZUMAB-ADCD
     Dosage: 230 MG, Q2WEEKS
     Route: 042
     Dates: start: 20230821, end: 20231010
  4. VEGZELMA [Suspect]
     Active Substance: BEVACIZUMAB-ADCD
     Dosage: 210 MG, Q2WEEKS
     Route: 042
     Dates: start: 20230905, end: 20231010
  5. VEGZELMA [Suspect]
     Active Substance: BEVACIZUMAB-ADCD
     Dosage: 180 MG, Q2WEEKS
     Route: 042
     Dates: start: 20230926, end: 20231010
  6. VEGZELMA [Suspect]
     Active Substance: BEVACIZUMAB-ADCD
     Dosage: 200 MG, Q2WEEKS
     Route: 042
     Dates: start: 20231010, end: 20231010
  7. OXALIPLATIN [Suspect]
     Active Substance: OXALIPLATIN
     Indication: Chemotherapy
     Dates: start: 20230724
  8. GLUVITA [Concomitant]
     Indication: Prophylaxis
     Route: 048
     Dates: start: 20230719, end: 20231005
  9. GLUVITA [Concomitant]
     Indication: Rectal cancer
  10. LATODINE [Concomitant]
     Indication: Prophylaxis
     Route: 048
     Dates: start: 20230719, end: 20231030
  11. LATODINE [Concomitant]
     Indication: Gastritis
  12. MESIMA EX [Concomitant]
     Indication: Prophylaxis
     Route: 048
     Dates: start: 20230724, end: 20231030
  13. MESIMA EX [Concomitant]
     Indication: Immunodeficiency
  14. CNU [Concomitant]
     Indication: Rectal cancer
     Route: 048
     Dates: start: 20230719, end: 20231030
  15. CNU [Concomitant]
     Indication: Prophylaxis
  16. MEDIAVEN L [Concomitant]
     Indication: Rectal cancer
     Route: 048
     Dates: start: 20230807, end: 20231030
  17. MEDIAVEN L [Concomitant]
     Indication: Prophylaxis
  18. GLUTHIONE [Concomitant]
     Indication: Prophylaxis
     Route: 048
     Dates: start: 20230719, end: 20231030
  19. GLUTHIONE [Concomitant]
     Indication: Neuropathy peripheral
  20. DAEWON MEGESTROL ES [Concomitant]
     Indication: Prophylaxis
     Route: 048
     Dates: start: 20230807, end: 20231030
  21. DAEWON MEGESTROL ES [Concomitant]
     Indication: Decreased appetite
  22. DOXOFYLLINE [Concomitant]
     Active Substance: DOXOFYLLINE
     Indication: Pneumothorax
     Route: 048
     Dates: start: 20230927, end: 20231030
  23. REBAMIPIDE [Concomitant]
     Active Substance: REBAMIPIDE
     Indication: Pneumothorax
     Route: 048
     Dates: start: 20230927, end: 20231030
  24. RIFAMPIN [Concomitant]
     Active Substance: RIFAMPIN
     Indication: Pneumothorax
     Route: 048
     Dates: start: 20230927, end: 20231030
  25. MYAMBUTOL [Concomitant]
     Active Substance: ETHAMBUTOL HYDROCHLORIDE
     Indication: Pneumothorax
     Route: 048
     Dates: start: 20230927, end: 20231030
  26. AZITOPS [Concomitant]
     Indication: Pneumothorax
     Route: 048
     Dates: start: 20230927, end: 20231030
  27. RABEONE [Concomitant]
     Indication: Pneumothorax
     Route: 048
     Dates: start: 20230927, end: 20231030
  28. LUKIO [Concomitant]
     Indication: Pneumothorax
     Route: 048
     Dates: start: 20230927, end: 20231030
  29. NEXIUM I.V. [Concomitant]
     Active Substance: ESOMEPRAZOLE SODIUM
     Indication: Rectal cancer
     Route: 042
     Dates: start: 20231031, end: 20231107
  30. NEXIUM I.V. [Concomitant]
     Active Substance: ESOMEPRAZOLE SODIUM
     Indication: Prophylaxis

REACTIONS (1)
  - Asthenia [Fatal]

NARRATIVE: CASE EVENT DATE: 20231030
